FAERS Safety Report 20005479 (Version 1)
Quarter: 2021Q4

REPORT INFORMATION
  Report Type: Spontaneous
  Country: US (occurrence: US)
  Receive Date: 20211028
  Receipt Date: 20211028
  Transmission Date: 20220303
  Serious: Yes (Other)
  Sender: FDA-Public Use
  Company Number: US-MSNLABS-2021MSNSPO00519

PATIENT

DRUGS (2)
  1. CAPECITABINE [Suspect]
     Active Substance: CAPECITABINE
     Indication: Breast cancer
     Dosage: 1500MG EVERY  EVENING FOR 14 DAYS AND 1 WEEK OFF, 21 DAYS CYCLE
     Route: 048
  2. CAPECITABINE [Suspect]
     Active Substance: CAPECITABINE
     Dosage: EVERY MORNING FOR 14 DAYS, A WEEK OFF, 21 DAYS CYCLE
     Route: 048

REACTIONS (1)
  - Drug ineffective [Unknown]
